FAERS Safety Report 12109577 (Version 1)
Quarter: 2016Q1

REPORT INFORMATION
  Report Type: Spontaneous
  Country: US (occurrence: None)
  Receive Date: 20160223
  Receipt Date: 20160223
  Transmission Date: 20160526
  Serious: No
  Sender: FDA-Public Use
  Company Number: None

PATIENT
  Age: 53 Year
  Sex: Male
  Weight: 101.15 kg

DRUGS (7)
  1. OXYCODONE [Suspect]
     Active Substance: OXYCODONE
     Indication: NECK PAIN
     Dosage: 10 MG TAB 5 TIMES DAILY
     Route: 048
  2. LYRICA [Concomitant]
     Active Substance: PREGABALIN
  3. OXYCODONE [Concomitant]
     Active Substance: OXYCODONE
  4. OXYCODONE [Suspect]
     Active Substance: OXYCODONE
     Indication: ARTHRALGIA
     Dosage: 10 MG TAB 5 TIMES DAILY
     Route: 048
  5. OMEOPRAZOLE [Concomitant]
     Active Substance: OMEPRAZOLE
  6. OXYCODONE [Suspect]
     Active Substance: OXYCODONE
     Indication: BACK PAIN
     Dosage: 10 MG TAB 5 TIMES DAILY
     Route: 048
  7. CELEBREX [Concomitant]
     Active Substance: CELECOXIB

REACTIONS (3)
  - Drug ineffective [None]
  - Pain [None]
  - Product substitution issue [None]

NARRATIVE: CASE EVENT DATE: 20160220
